FAERS Safety Report 19133937 (Version 1)
Quarter: 2021Q2

REPORT INFORMATION
  Report Type: Spontaneous
  Country: US (occurrence: US)
  Receive Date: 20210414
  Receipt Date: 20210414
  Transmission Date: 20210717
  Serious: No
  Sender: FDA-Public Use
  Company Number: US-BION-008698

PATIENT
  Age: 44 Year
  Sex: Male

DRUGS (1)
  1. ALEVE [Suspect]
     Active Substance: NAPROXEN SODIUM
     Indication: PAIN
     Dosage: 1/2 DAILY
     Route: 048
     Dates: start: 201912, end: 202003

REACTIONS (4)
  - Wrong technique in product usage process [Not Recovered/Not Resolved]
  - Expired product administered [Not Recovered/Not Resolved]
  - Headache [Unknown]
  - Incorrect product administration duration [Not Recovered/Not Resolved]

NARRATIVE: CASE EVENT DATE: 201912
